FAERS Safety Report 10232828 (Version 1)
Quarter: 2014Q2

REPORT INFORMATION
  Report Type: Spontaneous
  Country: JP (occurrence: JP)
  Receive Date: 20140612
  Receipt Date: 20140612
  Transmission Date: 20141212
  Serious: Yes (Other)
  Sender: FDA-Public Use
  Company Number: JP-SA-2014SA076775

PATIENT
  Sex: Female

DRUGS (1)
  1. ALLEGRA FX [Suspect]
     Indication: SEASONAL ALLERGY
     Route: 048
     Dates: start: 201403, end: 20140410

REACTIONS (1)
  - White blood cell count decreased [Unknown]
